FAERS Safety Report 14044128 (Version 4)
Quarter: 2017Q4

REPORT INFORMATION
  Report Type: Spontaneous
  Country: US (occurrence: US)
  Receive Date: 20171004
  Receipt Date: 20171127
  Transmission Date: 20180321
  Serious: Yes (Hospitalization)
  Sender: FDA-Public Use
  Company Number: US-ALLERGAN-1756118US

PATIENT
  Age: 78 Year
  Sex: Female

DRUGS (7)
  1. FEROSOL [Concomitant]
     Active Substance: IRON
     Indication: ANAEMIA
     Dosage: 3 TIMES DAILY
  2. INFED [Suspect]
     Active Substance: IRON DEXTRAN
     Indication: ANAEMIA
     Dosage: UNK
     Route: 065
     Dates: start: 20170918, end: 20170918
  3. BABY ASPIRIN [Concomitant]
     Active Substance: ASPIRIN
     Indication: PRODUCT USED FOR UNKNOWN INDICATION
     Dosage: UNK UNK, QD
     Route: 048
  4. KLONOPIN [Concomitant]
     Active Substance: CLONAZEPAM
     Indication: ANXIETY
     Dosage: UNK
     Route: 048
  5. ZOCOR CARDIO ASS [Concomitant]
     Indication: BLOOD CHOLESTEROL ABNORMAL
     Dosage: UNK
     Route: 048
  6. EFFEXOR [Concomitant]
     Active Substance: VENLAFAXINE HYDROCHLORIDE
     Indication: DEPRESSION
     Dosage: UNK
     Route: 048
  7. ARIMIDEX [Concomitant]
     Active Substance: ANASTROZOLE
     Indication: BREAST CANCER
     Dosage: UNK
     Route: 048

REACTIONS (10)
  - Malaise [Recovered/Resolved]
  - Memory impairment [Unknown]
  - Loss of consciousness [Recovered/Resolved]
  - Disturbance in attention [Not Recovered/Not Resolved]
  - Fall [Recovered/Resolved]
  - Eye movement disorder [Recovered/Resolved]
  - Limb injury [Recovered/Resolved]
  - Urinary incontinence [Recovered/Resolved]
  - Anaphylactic shock [Recovered/Resolved]
  - Cardiac arrest [Recovered/Resolved]

NARRATIVE: CASE EVENT DATE: 201709
